FAERS Safety Report 13879065 (Version 2)
Quarter: 2017Q3

REPORT INFORMATION
  Report Type: Spontaneous
  Country: US (occurrence: US)
  Receive Date: 20170817
  Receipt Date: 20170908
  Transmission Date: 20171127
  Serious: Yes (Hospitalization)
  Sender: FDA-Public Use
  Company Number: US-ACTELION-A-US2017-158013

PATIENT
  Age: 31 Year
  Sex: Female
  Weight: 65.76 kg

DRUGS (1)
  1. VELETRI [Suspect]
     Active Substance: EPOPROSTENOL
     Indication: PULMONARY ARTERIAL HYPERTENSION
     Dosage: 59 NG/KG, PER MIN
     Route: 042

REACTIONS (3)
  - Septic embolus [Recovering/Resolving]
  - Sepsis [Recovering/Resolving]
  - Staphylococcal bacteraemia [Recovering/Resolving]
